FAERS Safety Report 17770986 (Version 1)
Quarter: 2020Q2

REPORT INFORMATION
  Report Type: Spontaneous
  Country: DE (occurrence: DE)
  Receive Date: 20200512
  Receipt Date: 20200512
  Transmission Date: 20200714
  Serious: Yes (Other)
  Sender: FDA-Public Use
  Company Number: DE-TEVA-2020-DE-1235295

PATIENT
  Age: 34 Year
  Sex: Male

DRUGS (1)
  1. COPAXONE [Suspect]
     Active Substance: GLATIRAMER ACETATE
     Indication: MULTIPLE SCLEROSIS
     Dates: start: 20200415

REACTIONS (3)
  - Rhinitis [Unknown]
  - Nasal septum perforation [Unknown]
  - Paranasal sinus inflammation [Unknown]

NARRATIVE: CASE EVENT DATE: 20200504
